FAERS Safety Report 16219835 (Version 3)
Quarter: 2019Q2

REPORT INFORMATION
  Report Type: Spontaneous
  Country: PL (occurrence: PL)
  Receive Date: 20190420
  Receipt Date: 20190606
  Transmission Date: 20190711
  Serious: Yes (Death, Hospitalization, Disabling, Other)
  Sender: FDA-Public Use
  Company Number: PL-AUROBINDO-AUR-APL-2019-020993

PATIENT

DRUGS (17)
  1. FLUCONAZOLE. [Interacting]
     Active Substance: FLUCONAZOLE
     Indication: FUNGAL INFECTION
  2. OLANZAPINE. [Interacting]
     Active Substance: OLANZAPINE
     Indication: PSYCHOTIC DISORDER
  3. POTASSIUM [Suspect]
     Active Substance: POTASSIUM
     Indication: PRODUCT USED FOR UNKNOWN INDICATION
     Dosage: UNK
     Route: 065
  4. FLUCONAZOLE. [Suspect]
     Active Substance: FLUCONAZOLE
     Indication: ORAL DISORDER
     Dosage: 200 MILLIGRAM, ONCE A DAY
     Route: 048
  5. FLUCONAZOLE. [Interacting]
     Active Substance: FLUCONAZOLE
     Indication: ORAL FUNGAL INFECTION
  6. AMITRIPTYLINE [Interacting]
     Active Substance: AMITRIPTYLINE
     Indication: PSYCHOTIC DISORDER
  7. MORPHINE [Interacting]
     Active Substance: MORPHINE
     Indication: ANALGESIC THERAPY
     Dosage: 240 MILLIGRAM, ONCE A DAY
     Route: 048
  8. MORPHINE [Interacting]
     Active Substance: MORPHINE
     Indication: CERVIX CARCINOMA
  9. MORPHINE [Interacting]
     Active Substance: MORPHINE
     Indication: NEURALGIA
  10. AMITRIPTYLINE [Interacting]
     Active Substance: AMITRIPTYLINE
     Indication: NEURALGIA
  11. OLANZAPINE. [Interacting]
     Active Substance: OLANZAPINE
     Indication: NAUSEA
  12. OLANZAPINE. [Interacting]
     Active Substance: OLANZAPINE
     Indication: INITIAL INSOMNIA
  13. FUROSEMIDE. [Suspect]
     Active Substance: FUROSEMIDE
     Indication: PROPHYLAXIS
     Dosage: 60 MILLIGRAM, ONCE A DAY
     Route: 065
  14. OLANZAPINE. [Interacting]
     Active Substance: OLANZAPINE
     Indication: INSOMNIA
     Dosage: 10 MILLIGRAM, ONCE A DAY
     Route: 065
  15. AMITRIPTYLINE [Interacting]
     Active Substance: AMITRIPTYLINE
     Indication: ANALGESIC THERAPY
     Dosage: 150 MILLIGRAM, DAILY (50 MG, TID)
     Route: 065
  16. AMITRIPTYLINE [Interacting]
     Active Substance: AMITRIPTYLINE
     Indication: CERVIX CARCINOMA
  17. LOW MOLECULAR WEIGHT HEPARIN [Suspect]
     Active Substance: UNSPECIFIED INGREDIENT
     Indication: PROPHYLAXIS
     Dosage: UNK, A PREVENTIVE DOSE
     Route: 065

REACTIONS (16)
  - Haemoptysis [Fatal]
  - Insomnia [Recovering/Resolving]
  - Cardiac arrest [Fatal]
  - Cardio-respiratory arrest [Fatal]
  - Cough [Fatal]
  - Oedema peripheral [Fatal]
  - Drug interaction [Fatal]
  - Peripheral swelling [Fatal]
  - Venous thrombosis [Fatal]
  - Dyspnoea [Fatal]
  - Chest pain [Fatal]
  - Cyanosis [Fatal]
  - Confusional state [Unknown]
  - Somnolence [Fatal]
  - Pulmonary embolism [Fatal]
  - Nausea [Recovered/Resolved]
